FAERS Safety Report 25994786 (Version 1)
Quarter: 2025Q4

REPORT INFORMATION
  Report Type: Spontaneous
  Country: US (occurrence: US)
  Receive Date: 20251104
  Receipt Date: 20251104
  Transmission Date: 20260117
  Serious: No
  Sender: Onesource Specialty Pharma
  Company Number: US-STRIDES ARCOLAB LIMITED-2025-ST-001184

PATIENT
  Age: 29 Year
  Sex: Female

DRUGS (10)
  1. BUPIVACAINE [Suspect]
     Active Substance: BUPIVACAINE
     Indication: Epidural analgesia
     Dosage: 10 MILLILITER BOLUS, OVER 2 HOUR
     Route: 008
  2. BUPIVACAINE [Suspect]
     Active Substance: BUPIVACAINE
     Indication: Analgesic therapy
     Dosage: 10 MILLILITER BOLUS, OVER 2 HOUR
     Route: 008
  3. BUPIVACAINE [Suspect]
     Active Substance: BUPIVACAINE
     Dosage: 1.25 MILLIGRAM
     Route: 037
  4. BUPIVACAINE [Suspect]
     Active Substance: BUPIVACAINE
     Indication: Epidural analgesia
     Dosage: 10 MILLILITER BOLUS
     Route: 008
  5. BUPIVACAINE [Suspect]
     Active Substance: BUPIVACAINE
     Indication: Epidural analgesia
     Dosage: 10 MILLILITER, BOLUS, OVER 2 HOUR
     Route: 008
  6. BUPIVACAINE [Suspect]
     Active Substance: BUPIVACAINE
     Dosage: 10 MILLILITER, BOLUS, OVER 2 HOUR
     Route: 008
  7. FENTANYL [Suspect]
     Active Substance: FENTANYL
     Indication: Epidural analgesia
     Dosage: 2 ?G/ML
     Route: 008
  8. FENTANYL [Suspect]
     Active Substance: FENTANYL
     Indication: Analgesic therapy
     Dosage: 4 MICROGRAM
     Route: 037
  9. CYTARABINE [Suspect]
     Active Substance: CYTARABINE
     Indication: Non-Hodgkin^s lymphoma metastatic
     Dosage: UNK
     Route: 065
  10. METHOTREXATE [Suspect]
     Active Substance: METHOTREXATE
     Indication: Non-Hodgkin^s lymphoma metastatic
     Dosage: UNK
     Route: 065

REACTIONS (4)
  - Discomfort [Unknown]
  - Therapy non-responder [Unknown]
  - Maternal exposure during delivery [Unknown]
  - Off label use [Unknown]
